FAERS Safety Report 5590797-X (Version None)
Quarter: 2008Q1

REPORT INFORMATION
  Report Type: 
  Country: None (occurrence: None)
  Receive Date: 20080110
  Receipt Date: 20080104
  Transmission Date: 20080703
  Serious: Yes (Other)
  Sender: FDA-Public Use
  Company Number: 2008SP000357

PATIENT
  Age: 47 Year
  Sex: Male

DRUGS (6)
  1. POTASSIUM CHLORIDE [Suspect]
     Indication: MENIERE'S DISEASE
     Dosage: 6 GM;QD;, 12 GM;QD;, 9 GM; QD;, 6 GM;QD;, 3 GM;QD;
     Dates: start: 19420701
  2. POTASSIUM CHLORIDE [Suspect]
     Indication: MENIERE'S DISEASE
     Dosage: 6 GM;QD;, 12 GM;QD;, 9 GM; QD;, 6 GM;QD;, 3 GM;QD;
     Dates: start: 19430318
  3. POTASSIUM CHLORIDE [Suspect]
     Indication: MENIERE'S DISEASE
     Dosage: 6 GM;QD;, 12 GM;QD;, 9 GM; QD;, 6 GM;QD;, 3 GM;QD;
     Dates: start: 19430513
  4. POTASSIUM CHLORIDE [Suspect]
     Indication: MENIERE'S DISEASE
     Dosage: 6 GM;QD;, 12 GM;QD;, 9 GM; QD;, 6 GM;QD;, 3 GM;QD;
     Dates: start: 19440801
  5. PHENOBARBITAL TAB [Concomitant]
  6. AMMONIUM CHLORIDE [Concomitant]

REACTIONS (3)
  - CEREBRAL DISORDER [None]
  - ELECTROENCEPHALOGRAM ABNORMAL [None]
  - FALL [None]
